FAERS Safety Report 24918628 (Version 1)
Quarter: 2025Q1

REPORT INFORMATION
  Report Type: Spontaneous
  Country: US (occurrence: US)
  Receive Date: 20250203
  Receipt Date: 20250203
  Transmission Date: 20250409
  Serious: Yes (Death, Other)
  Sender: ENDO
  Company Number: US-ENDO USA, INC.-2025-000192

PATIENT
  Age: 82 Year
  Sex: Male

DRUGS (1)
  1. SUMAVEL DOSEPRO [Suspect]
     Active Substance: SUMATRIPTAN SUCCINATE
     Indication: Product used for unknown indication
     Route: 042

REACTIONS (3)
  - Incorrect route of product administration [Fatal]
  - Pulseless electrical activity [Fatal]
  - Respiratory distress [Unknown]

NARRATIVE: CASE EVENT DATE: 20230101
